FAERS Safety Report 14121208 (Version 1)
Quarter: 2017Q4

REPORT INFORMATION
  Report Type: Other
  Country: DE (occurrence: DE)
  Receive Date: 20171024
  Receipt Date: 20171024
  Transmission Date: 20180321
  Serious: Yes (Hospitalization)
  Sender: FDA-Public Use
  Company Number: DE-CELLTRION HEALTHCARE JAPAN K.K.-2017DE014269

PATIENT

DRUGS (1)
  1. INFLECTRA [Suspect]
     Active Substance: INFLIXIMAB-DYYB
     Indication: CROHN^S DISEASE
     Dosage: 400 MG, UNK
     Route: 042
     Dates: start: 201702, end: 201709

REACTIONS (7)
  - Dermatitis psoriasiform [Recovering/Resolving]
  - Pruritus [Recovering/Resolving]
  - Oedema peripheral [Recovering/Resolving]
  - Skin exfoliation [Recovering/Resolving]
  - Dermatitis allergic [Recovering/Resolving]
  - Palmoplantar keratoderma [Recovering/Resolving]
  - Skin plaque [Recovering/Resolving]

NARRATIVE: CASE EVENT DATE: 20170928
